FAERS Safety Report 6912627-3 (Version None)
Quarter: 2010Q3

REPORT INFORMATION
  Report Type: 
  Country: None (occurrence: None)
  Receive Date: 20100806
  Receipt Date: 20080912
  Transmission Date: 20110219
  Serious: No
  Sender: FDA-Public Use
  Company Number: US-PFIZER INC-2008070622

PATIENT
  Sex: Female
  Weight: 70 kg

DRUGS (5)
  1. DETROL LA [Suspect]
     Indication: HYPERTONIC BLADDER
     Dates: end: 20080701
  2. SYNTHROID [Concomitant]
  3. NEXIUM [Concomitant]
  4. VYTORIN [Concomitant]
  5. PREMARIN [Concomitant]

REACTIONS (1)
  - DRUG INEFFECTIVE [None]
